FAERS Safety Report 4452553-5 (Version None)
Quarter: 2004Q3

REPORT INFORMATION
  Report Type: 
  Country: None (occurrence: None)
  Receive Date: 20040813
  Receipt Date: 20040513
  Transmission Date: 20050211
  Serious: No
  Sender: FDA-Public Use
  Company Number: S04-USA-03423-01

PATIENT
  Age: 78 Year
  Sex: Male

DRUGS (7)
  1. NAMENDA [Suspect]
     Indication: DEMENTIA
     Dosage: 10 MG QD PO
     Route: 048
     Dates: start: 20040428, end: 20040504
  2. NAMENDA [Suspect]
     Indication: DEMENTIA
     Dosage: 15 MG QD PO
     Route: 048
     Dates: start: 20040505, end: 20040511
  3. NAMENDA [Suspect]
     Indication: DEMENTIA
     Dosage: 20 MG QD PO
     Route: 048
     Dates: start: 20040512
  4. NAMENDA [Suspect]
     Indication: DEMENTIA
     Dosage: 5 MG QD PO
     Route: 048
     Dates: start: 20040421, end: 20040427
  5. BLOOD PRESSURE MEDICATION (NOS) [Concomitant]
  6. CHOLESTEROL MEDICATION (NOS) [Concomitant]
  7. ARICEPT [Concomitant]

REACTIONS (3)
  - CONFUSIONAL STATE [None]
  - DYSKINESIA [None]
  - GAIT DISTURBANCE [None]
